FAERS Safety Report 7428958-7 (Version None)
Quarter: 2011Q2

REPORT INFORMATION
  Report Type: 
  Country: None (occurrence: None)
  Receive Date: 20110412
  Receipt Date: 20110325
  Transmission Date: 20111010
  Serious: Yes (Other)
  Sender: FDA-Public Use
  Company Number: 013902

PATIENT
  Age: 46 Year
  Sex: Male

DRUGS (3)
  1. MACUGEN [Suspect]
     Indication: MACULAR OEDEMA
     Dosage: SEE IMAGE
     Route: 031
     Dates: start: 20110107, end: 20110107
  2. MACUGEN [Suspect]
     Indication: MACULAR OEDEMA
     Dosage: SEE IMAGE
     Route: 031
     Dates: start: 20101105, end: 20101105
  3. MACUGEN [Suspect]
     Indication: MACULAR OEDEMA
     Dosage: SEE IMAGE
     Route: 031
     Dates: start: 20101203, end: 20101203

REACTIONS (2)
  - RETINAL ARTERY OCCLUSION [None]
  - INTRAOCULAR PRESSURE INCREASED [None]
